FAERS Safety Report 20359023 (Version 1)
Quarter: 2022Q1

REPORT INFORMATION
  Report Type: Spontaneous
  Country: US (occurrence: US)
  Receive Date: 20220120
  Receipt Date: 20220120
  Transmission Date: 20220423
  Serious: No
  Sender: FDA-Public Use
  Company Number: US-TERSERA THERAPEUTICS LLC-2021TRS000946

PATIENT

DRUGS (3)
  1. PRIALT [Suspect]
     Active Substance: ZICONOTIDE ACETATE
     Indication: Post laminectomy syndrome
     Dosage: UNK
     Route: 037
     Dates: start: 201909
  2. PRIALT [Suspect]
     Active Substance: ZICONOTIDE ACETATE
     Dosage: GONE UP FROM 3.198 MCG PER DAY, THEN DECREASE BACK DOWN
     Route: 037
  3. PRIALT [Suspect]
     Active Substance: ZICONOTIDE ACETATE
     Dosage: 3.198 MCG, QD
     Route: 037

REACTIONS (1)
  - Rash [Unknown]
